FAERS Safety Report 10920670 (Version 3)
Quarter: 2015Q2

REPORT INFORMATION
  Report Type: Spontaneous
  Country: JP (occurrence: JP)
  Receive Date: 20150317
  Receipt Date: 20150409
  Transmission Date: 20150821
  Serious: Yes (Hospitalization, Other)
  Sender: FDA-Public Use
  Company Number: JP-RANBAXY-2015RR-93942

PATIENT
  Age: 36 Year
  Sex: Female

DRUGS (3)
  1. EVE QUICK [Suspect]
     Active Substance: APRONALIDE\CAFFEINE\IBUPROFEN\MAGNESIUM OXIDE
     Indication: HEADACHE
     Dosage: 4 TIMES A DAY DURING THE LAST 20 DAYS
     Route: 065
  2. AZULENE SODIUM SULFONATE [Concomitant]
     Active Substance: SODIUM GUALENATE
     Indication: PRODUCT USED FOR UNKNOWN INDICATION
     Dosage: UNK
     Route: 065
  3. DOMPERIDONE [Concomitant]
     Active Substance: DOMPERIDONE
     Indication: PRODUCT USED FOR UNKNOWN INDICATION
     Dosage: UNK
     Route: 065

REACTIONS (6)
  - Erythema multiforme [Recovered/Resolved]
  - Hypersensitivity [Unknown]
  - Hepatic function abnormal [None]
  - Drug-induced liver injury [Recovered/Resolved]
  - Chromaturia [None]
  - Abdominal pain upper [Unknown]
